FAERS Safety Report 24607066 (Version 1)
Quarter: 2024Q4

REPORT INFORMATION
  Report Type: Spontaneous
  Country: US (occurrence: None)
  Receive Date: 20241108
  Receipt Date: 20241108
  Transmission Date: 20250114
  Serious: Yes (Hospitalization)
  Sender: Public
  Company Number: None

PATIENT
  Age: 65 Year
  Sex: Male
  Weight: 126 kg

DRUGS (4)
  1. BUPRENORPHINE [Suspect]
     Active Substance: BUPRENORPHINE
     Indication: Pain
     Dosage: 150.00 MG TWICE A DAY SUBLINGUAL
     Route: 060
     Dates: start: 20240509
  2. CYCLOBENZAPRINE HYDROCHLORIDE [Suspect]
     Active Substance: CYCLOBENZAPRINE HYDROCHLORIDE
     Indication: Pain
     Dosage: 10.00 MG 3 TIMES A DAY ORAL
     Route: 048
     Dates: start: 20181127, end: 20240822
  3. AZITHROMYCIN [Suspect]
     Active Substance: AZITHROMYCIN
  4. SUBOXONE [Suspect]
     Active Substance: BUPRENORPHINE HYDROCHLORIDE\NALOXONE HYDROCHLORIDE

REACTIONS (4)
  - Palpitations [None]
  - Electrocardiogram QT prolonged [None]
  - Tachycardia [None]
  - Torsade de pointes [None]

NARRATIVE: CASE EVENT DATE: 20240823
